FAERS Safety Report 12113235 (Version 1)
Quarter: 2016Q1

REPORT INFORMATION
  Report Type: Spontaneous
  Country: US (occurrence: US)
  Receive Date: 20160225
  Receipt Date: 20160225
  Transmission Date: 20160526
  Serious: No
  Sender: FDA-Public Use
  Company Number: US-GLENMARK PHARMACEUTICALS INC, USA.-2016GMK021836

PATIENT

DRUGS (4)
  1. ANTACIDS [Concomitant]
     Active Substance: UNSPECIFIED INGREDIENT
     Indication: DYSPEPSIA
     Dosage: UNK
  2. OMEPRAZOLE. [Suspect]
     Active Substance: OMEPRAZOLE
     Indication: DYSPEPSIA
     Dosage: UNK
  3. OMEPRAZOLE. [Suspect]
     Active Substance: OMEPRAZOLE
     Indication: REFLUX LARYNGITIS
  4. ANTACIDS [Concomitant]
     Active Substance: UNSPECIFIED INGREDIENT
     Indication: DYSPHAGIA

REACTIONS (2)
  - Off label use [Unknown]
  - Exposure during pregnancy [Unknown]
